FAERS Safety Report 5566672-3 (Version None)
Quarter: 2007Q4

REPORT INFORMATION
  Report Type: 
  Country: None (occurrence: None)
  Receive Date: 20071219
  Receipt Date: 20071205
  Transmission Date: 20080405
  Serious: Yes (Disabling)
  Sender: FDA-Public Use
  Company Number: US-ROCHE-535100

PATIENT
  Age: 56 Year
  Sex: Female

DRUGS (2)
  1. CAPECITABINE [Suspect]
     Route: 048
     Dates: start: 20070312, end: 20070813
  2. LAPATINIB [Suspect]
     Route: 048
     Dates: start: 20070312, end: 20070813

REACTIONS (3)
  - LOCALISED OEDEMA [None]
  - OEDEMA [None]
  - WHEEZING [None]
